FAERS Safety Report 15491248 (Version 1)
Quarter: 2018Q4

REPORT INFORMATION
  Report Type: Spontaneous
  Country: US (occurrence: US)
  Receive Date: 20181012
  Receipt Date: 20181012
  Transmission Date: 20190205
  Serious: Yes (Other)
  Sender: FDA-Public Use
  Company Number: US-STRIDES ARCOLAB LIMITED-2018SP008832

PATIENT
  Age: 63 Year
  Sex: Male

DRUGS (3)
  1. SIROLIMUS. [Concomitant]
     Active Substance: SIROLIMUS
     Indication: BONE MARROW TRANSPLANT
     Dosage: UNK
     Route: 065
  2. MYCOPHENOLATE MOFETIL. [Suspect]
     Active Substance: MYCOPHENOLATE MOFETIL
     Indication: ACUTE GRAFT VERSUS HOST DISEASE
     Dosage: UNK
     Route: 065
  3. TACROLIMUS. [Suspect]
     Active Substance: TACROLIMUS
     Indication: BONE MARROW TRANSPLANT
     Dosage: 0.5 MG/DAY
     Route: 065

REACTIONS (9)
  - Optic nerve sheath haemorrhage [Recovered/Resolved]
  - Papilloedema [Recovered/Resolved]
  - Off label use [Unknown]
  - Pupillary reflex impaired [Recovered/Resolved]
  - Retinal exudates [Recovered/Resolved]
  - Blindness [Recovered/Resolved]
  - Optic neuropathy [Recovered/Resolved]
  - Toxicity to various agents [Recovered/Resolved]
  - Dyschromatopsia [Recovered/Resolved]
